FAERS Safety Report 5585260-6 (Version None)
Quarter: 2008Q1

REPORT INFORMATION
  Report Type: 
  Country: None (occurrence: None)
  Receive Date: 20080108
  Receipt Date: 20080108
  Transmission Date: 20080703
  Serious: No
  Sender: FDA-Public Use
  Company Number: None

PATIENT
  Age: 40 Year
  Sex: Female

DRUGS (8)
  1. G-MERCAPTOPURINE [Suspect]
     Dates: start: 20000201, end: 20070307
  2. OMEPROZOLE [Concomitant]
  3. ADVAIR DISKUS 100/50 [Concomitant]
  4. AZITHROMYCIN [Concomitant]
  5. ALBUTEROL [Concomitant]
  6. LISINOPRIL [Concomitant]
  7. HUMERA [Concomitant]
  8. MULTI-VITAMIN [Concomitant]

REACTIONS (11)
  - ALANINE AMINOTRANSFERASE INCREASED [None]
  - ASPARTATE AMINOTRANSFERASE INCREASED [None]
  - ASTHENIA [None]
  - BLOOD ALKALINE PHOSPHATASE INCREASED [None]
  - BLOOD BILIRUBIN INCREASED [None]
  - CHROMATURIA [None]
  - HEPATOTOXICITY [None]
  - JAUNDICE [None]
  - OCULAR ICTERUS [None]
  - PRURITUS [None]
  - WEIGHT DECREASED [None]
